FAERS Safety Report 6872420-7 (Version None)
Quarter: 2010Q3

REPORT INFORMATION
  Report Type: 
  Country: None (occurrence: None)
  Receive Date: 20100721
  Receipt Date: 20100617
  Transmission Date: 20110219
  Serious: No
  Sender: FDA-Public Use
  Company Number: CC10-507

PATIENT
  Age: 83 Year
  Sex: Female

DRUGS (3)
  1. METRONIDAZOLE [Suspect]
     Indication: ACNE
     Dosage: BID
     Dates: start: 20100610
  2. DOXYCYCLINE [Suspect]
     Indication: ACNE
     Dosage: 100 MG,
     Dates: start: 20100610
  3. UNKNOWN HYPERTENSION MEDICATION [Concomitant]

REACTIONS (5)
  - DRY MOUTH [None]
  - NAUSEA [None]
  - PURULENCE [None]
  - REFUSAL OF TREATMENT BY PATIENT [None]
  - SCAB [None]
